FAERS Safety Report 24449456 (Version 1)
Quarter: 2024Q4

REPORT INFORMATION
  Report Type: Report from Study
  Country: PL (occurrence: PL)
  Receive Date: 20241017
  Receipt Date: 20241017
  Transmission Date: 20250115
  Serious: Yes (Other)
  Sender: AUROBINDO
  Company Number: PL-ROCHE-10000097947

PATIENT
  Age: 63 Year
  Sex: Male

DRUGS (5)
  1. RITONAVIR [Suspect]
     Active Substance: RITONAVIR
     Indication: Chronic hepatitis C
     Dosage: UNK
     Route: 065
  2. PARITAPREVIR [Suspect]
     Active Substance: PARITAPREVIR
     Indication: Chronic hepatitis C
     Dosage: UNK
     Route: 065
  3. DASABUVIR [Suspect]
     Active Substance: DASABUVIR
     Indication: Chronic hepatitis C
     Dosage: UNK
     Route: 065
  4. OMBITASVIR [Suspect]
     Active Substance: OMBITASVIR
     Indication: Chronic hepatitis C
     Dosage: UNK
     Route: 065
  5. RIBAVIRIN [Suspect]
     Active Substance: RIBAVIRIN
     Indication: Chronic hepatitis C
     Dosage: UNK
     Route: 065

REACTIONS (1)
  - Hepatocellular carcinoma [Unknown]
